FAERS Safety Report 14828627 (Version 2)
Quarter: 2018Q2

REPORT INFORMATION
  Report Type: Spontaneous
  Country: CA (occurrence: CA)
  Receive Date: 20180430
  Receipt Date: 20180514
  Transmission Date: 20180711
  Serious: Yes (Congenital Anomaly, Other)
  Sender: FDA-Public Use
  Company Number: CA-IMPAX LABORATORIES, INC-2018-IPXL-01400

PATIENT
  Sex: Female

DRUGS (13)
  1. DULOXETINE. [Suspect]
     Active Substance: DULOXETINE
     Indication: FOETAL EXPOSURE DURING PREGNANCY
     Dosage: UNK
     Route: 064
  2. DULOXETINE. [Suspect]
     Active Substance: DULOXETINE
     Indication: MATERNAL EXPOSURE DURING BREAST FEEDING
     Dosage: UNK
     Route: 063
  3. LEVOTHYROXINE. [Suspect]
     Active Substance: LEVOTHYROXINE
     Indication: FOETAL EXPOSURE DURING PREGNANCY
     Dosage: UNK
     Route: 064
  4. DOMPERIDONE [Suspect]
     Active Substance: DOMPERIDONE
     Indication: MATERNAL EXPOSURE DURING BREAST FEEDING
     Dosage: 20 MG, TWO TO FOUR TIMES A DAY
     Route: 063
  5. METHYLPHENIDATE HYDROCHLORIDE. [Suspect]
     Active Substance: METHYLPHENIDATE HYDROCHLORIDE
     Indication: FOETAL EXPOSURE DURING PREGNANCY
     Dosage: UNK
     Route: 064
  6. FERROUS SULFATE. [Suspect]
     Active Substance: FERROUS SULFATE
     Indication: FOETAL EXPOSURE DURING PREGNANCY
     Dosage: UNK
     Route: 064
  7. OMEPRAZOLE DELAYED RELEASE [Suspect]
     Active Substance: OMEPRAZOLE
     Indication: FOETAL EXPOSURE DURING PREGNANCY
     Dosage: UNK
     Route: 064
  8. METHYLPHENIDATE HYDROCHLORIDE. [Suspect]
     Active Substance: METHYLPHENIDATE HYDROCHLORIDE
     Indication: MATERNAL EXPOSURE DURING BREAST FEEDING
     Dosage: UNK
     Route: 063
  9. URSODIOL. [Suspect]
     Active Substance: URSODIOL
     Indication: FOETAL EXPOSURE DURING PREGNANCY
     Dosage: UNK
     Route: 064
  10. INSULIN [Suspect]
     Active Substance: INSULIN NOS
     Indication: FOETAL EXPOSURE DURING PREGNANCY
     Dosage: UNK
     Route: 064
  11. DOCUSATE SODIUM. [Suspect]
     Active Substance: DOCUSATE SODIUM
     Indication: FOETAL EXPOSURE DURING PREGNANCY
     Dosage: UNK
     Route: 064
  12. CYCLOBENZAPRINE. [Suspect]
     Active Substance: CYCLOBENZAPRINE
     Indication: FOETAL EXPOSURE DURING PREGNANCY
     Dosage: UNK
     Route: 064
  13. LEVOTHYROXINE. [Suspect]
     Active Substance: LEVOTHYROXINE
     Indication: MATERNAL EXPOSURE DURING BREAST FEEDING
     Dosage: UNK (TAPERED)
     Route: 063

REACTIONS (5)
  - Congenital cystic lung [Unknown]
  - Somnolence [Unknown]
  - Exposure via breast milk [Unknown]
  - Foetal exposure during pregnancy [Unknown]
  - Pneumonia [Not Recovered/Not Resolved]
